FAERS Safety Report 11228981 (Version 1)
Quarter: 2015Q2

REPORT INFORMATION
  Report Type: Spontaneous
  Country: US (occurrence: US)
  Receive Date: 20150630
  Receipt Date: 20150630
  Transmission Date: 20150821
  Serious: No
  Sender: FDA-Public Use
  Company Number: US-ENDO PHARMACEUTICALS INC.-TRIA20140003

PATIENT
  Sex: Female

DRUGS (1)
  1. TRIAMCINOLONE ACETONIDE CREAM 0.1% [Suspect]
     Active Substance: TRIAMCINOLONE ACETONIDE
     Indication: RASH
     Route: 061
     Dates: start: 2014

REACTIONS (2)
  - Eye disorder [Unknown]
  - Dry eye [Unknown]
